FAERS Safety Report 25966784 (Version 1)
Quarter: 2025Q4

REPORT INFORMATION
  Report Type: Spontaneous
  Country: IN (occurrence: IN)
  Receive Date: 20251028
  Receipt Date: 20251028
  Transmission Date: 20260117
  Serious: Yes (Other)
  Sender: ROCHE
  Company Number: IN-ROCHE-10000418623

PATIENT
  Sex: Female
  Weight: 1.641 kg

DRUGS (4)
  1. OSELTAMIVIR [Suspect]
     Active Substance: OSELTAMIVIR
     Indication: Product used for unknown indication
     Route: 064
  2. MEROPENEM [Suspect]
     Active Substance: MEROPENEM
     Indication: Product used for unknown indication
     Route: 064
  3. AZITHROMYCIN [Suspect]
     Active Substance: AZITHROMYCIN
     Indication: Product used for unknown indication
     Route: 064
  4. LINEZOLID [Suspect]
     Active Substance: LINEZOLID
     Indication: Product used for unknown indication
     Route: 064

REACTIONS (13)
  - Respiratory distress [Unknown]
  - Foetal exposure during pregnancy [Unknown]
  - Thrombocytopenia [Unknown]
  - Sepsis [Unknown]
  - Lethargy [Unknown]
  - Apnoea [Unknown]
  - Pleocytosis [Unknown]
  - Protein total increased [Unknown]
  - Blood glucose decreased [Unknown]
  - Bacterial infection [Unknown]
  - Bacterial infection [Unknown]
  - Apgar score low [Unknown]
  - Low birth weight baby [Unknown]
